FAERS Safety Report 25800536 (Version 1)
Quarter: 2025Q3

REPORT INFORMATION
  Report Type: Spontaneous
  Country: GB (occurrence: GB)
  Receive Date: 20250915
  Receipt Date: 20250915
  Transmission Date: 20251020
  Serious: Yes (Other)
  Sender: MICRO LABS
  Company Number: GB-MHRA-WEBRADR-202509031136083960-RTCKZ

PATIENT
  Age: 68 Year
  Sex: Male

DRUGS (1)
  1. APIXABAN [Suspect]
     Active Substance: APIXABAN
     Indication: Atrial fibrillation
     Route: 048
     Dates: start: 20250829, end: 20250831

REACTIONS (1)
  - Lip swelling [Recovered/Resolved]
